FAERS Safety Report 12563442 (Version 3)
Quarter: 2017Q4

REPORT INFORMATION
  Report Type: Report from Study
  Country: CO (occurrence: CO)
  Receive Date: 20160715
  Receipt Date: 20171009
  Transmission Date: 20180320
  Serious: Yes (Disabling, Other)
  Sender: FDA-Public Use
  Company Number: CO-REGENERON PHARMACEUTICALS, INC.-2016-19305

PATIENT

DRUGS (7)
  1. EYLEA [Suspect]
     Active Substance: AFLIBERCEPT
     Dosage: 1 DF, Q1MON, RIGHT EYE
     Dates: start: 20160523, end: 20160523
  2. EYLEA [Suspect]
     Active Substance: AFLIBERCEPT
     Dosage: 1 DF, Q1MON, RIGHT EYE
     Dates: start: 20170621, end: 20170621
  3. EYLEA [Suspect]
     Active Substance: AFLIBERCEPT
     Dosage: 1 DF, Q1MON, RIGHT EYE
     Dates: start: 20160212, end: 20160212
  4. EYLEA [Suspect]
     Active Substance: AFLIBERCEPT
     Indication: AGE-RELATED MACULAR DEGENERATION
     Dosage: 1 DF, Q1MON, RIGHT EYE
     Dates: start: 20151012, end: 20151012
  5. EYLEA [Suspect]
     Active Substance: AFLIBERCEPT
     Dosage: 1 DF, Q1MON, RIGHT EYE
     Dates: start: 20151212, end: 20151212
  6. EYLEA [Suspect]
     Active Substance: AFLIBERCEPT
     Dosage: 1 DF, Q1MON, RIGHT EYE
     Dates: start: 20151112, end: 20151112
  7. EYLEA [Suspect]
     Active Substance: AFLIBERCEPT
     Dosage: 1 DF, Q1MON, RIGHT EYE
     Dates: start: 20161130, end: 20161130

REACTIONS (4)
  - Visual field defect [Not Recovered/Not Resolved]
  - Cataract [Not Recovered/Not Resolved]
  - Blindness unilateral [Not Recovered/Not Resolved]
  - Eye haemorrhage [Not Recovered/Not Resolved]
